FAERS Safety Report 22146744 (Version 2)
Quarter: 2023Q2

REPORT INFORMATION
  Report Type: Spontaneous
  Country: IT (occurrence: IT)
  Receive Date: 20230328
  Receipt Date: 20230413
  Transmission Date: 20230721
  Serious: Yes (Hospitalization)
  Sender: FDA-Public Use
  Company Number: None

PATIENT
  Age: 57 Year
  Sex: Female
  Weight: 53 kg

DRUGS (1)
  1. EXEMESTANE [Suspect]
     Active Substance: EXEMESTANE
     Indication: Hormone replacement therapy
     Dosage: 25 MG
     Route: 048
     Dates: start: 201907

REACTIONS (2)
  - Renal artery stenosis [Recovered/Resolved with Sequelae]
  - Nephrectasia [Recovered/Resolved with Sequelae]

NARRATIVE: CASE EVENT DATE: 20220307
